FAERS Safety Report 5159322-1 (Version None)
Quarter: 2006Q4

REPORT INFORMATION
  Report Type: 
  Country: None (occurrence: None)
  Receive Date: 20061120
  Receipt Date: 20061106
  Transmission Date: 20070319
  Serious: Yes (Hospitalization)
  Sender: FDA-Public Use
  Company Number: CIP06002627

PATIENT
  Age: 94 Year
  Sex: Female

DRUGS (1)
  1. FURADANTIN [Suspect]
     Indication: URINARY TRACT INFECTION
     Dosage: 2 CAPSULES THREE TIMES DAILY, ORAL
     Route: 048
     Dates: start: 20060915, end: 20060918

REACTIONS (1)
  - PAROTITIS [None]
